FAERS Safety Report 8845156 (Version 1)
Quarter: 2012Q4

REPORT INFORMATION
  Report Type: Spontaneous
  Country: FR (occurrence: None)
  Receive Date: 20121015
  Receipt Date: 20121015
  Transmission Date: 20130627
  Serious: Yes (Hospitalization)
  Sender: FDA-Public Use
  Company Number: FR-1194561

PATIENT
  Age: 61 Year
  Sex: Female

DRUGS (15)
  1. OPATANOL [Suspect]
     Indication: AGE-RELATED MACULAR DEGENERATION
     Route: 047
  2. AMLOR [Suspect]
     Indication: HYPERTENSION
     Dates: start: 20120606
  3. AVASTIN [Suspect]
     Indication: AGE-RELATED MACULAR DEGENERATION
     Dosage: intravitreal injection Intraocular
     Route: 031
  4. MYDRIATICUM [Suspect]
     Indication: AGE-RELATED MACULAR DEGENERATION
     Route: 047
  5. IKOREL [Concomitant]
  6. COAPROVEL [Concomitant]
  7. PLAVIX [Concomitant]
  8. PLAVIX [Concomitant]
  9. TRINIPATCH [Concomitant]
  10. VASTAREL [Concomitant]
  11. LYRICA [Concomitant]
  12. PIASCLEDINE [Concomitant]
  13. EZETROL [Concomitant]
  14. XATRAL [Concomitant]
  15. ATENOLOL [Concomitant]

REACTIONS (6)
  - Toxic skin eruption [None]
  - Urosepsis [None]
  - Renal failure acute [None]
  - Pyrexia [None]
  - Face oedema [None]
  - Eosinophilia [None]
